FAERS Safety Report 6901055-2 (Version None)
Quarter: 2010Q3

REPORT INFORMATION
  Report Type: 
  Country: None (occurrence: None)
  Receive Date: 20100803
  Receipt Date: 20100723
  Transmission Date: 20110219
  Serious: Yes (Hospitalization)
  Sender: FDA-Public Use
  Company Number: FR-WYE-H16482010

PATIENT
  Age: 80 Year
  Sex: Female

DRUGS (12)
  1. CORDARONE [Suspect]
     Dosage: 200 MG TABLET, DAILY DOSE UNKNOWN
     Route: 048
     Dates: end: 20090116
  2. FOSAMAX [Concomitant]
  3. SOTALEX [Concomitant]
  4. COLCHICINE [Suspect]
     Dosage: NOT PROVIDED
     Dates: start: 20081201, end: 20090116
  5. ACETAMINOPHEN [Concomitant]
  6. HEMIGOXINE NATIVELLE [Suspect]
     Dates: end: 20090116
  7. LASIX [Suspect]
     Dosage: NOT PROVIDED
     Dates: end: 20090116
  8. ALLOPURINOL [Suspect]
     Dosage: NOT PROVIDED
     Route: 048
     Dates: start: 20081201, end: 20090116
  9. TANAKAN [Suspect]
     Dosage: NOT PROVIDED
     Dates: end: 20090116
  10. SPIRONOLACTONE [Suspect]
     Dosage: NOT PROVIDED
     Dates: end: 20090116
  11. CORTANCYL [Concomitant]
  12. DURAGESIC-100 [Suspect]
     Dosage: NOT PROVIDED
     Dates: start: 20090113, end: 20090116

REACTIONS (1)
  - ERYTHEMA [None]
